FAERS Safety Report 18618652 (Version 4)
Quarter: 2021Q1

REPORT INFORMATION
  Report Type: Spontaneous
  Country: US (occurrence: US)
  Receive Date: 20201215
  Receipt Date: 20210220
  Transmission Date: 20210419
  Serious: No
  Sender: FDA-Public Use
  Company Number: US-JNJFOC-20201214102

PATIENT
  Age: 4 Decade
  Sex: Female
  Weight: 47.67 kg

DRUGS (2)
  1. WOMENS ROGAINE UNSCENTED [Suspect]
     Active Substance: MINOXIDIL
     Indication: PRODUCT USED FOR UNKNOWN INDICATION
  2. WOMENS ROGAINE UNSCENTED [Suspect]
     Active Substance: MINOXIDIL
     Indication: ACCIDENTAL EXPOSURE TO PRODUCT
     Dosage: DOSE 1/3 OF THE CUP EVERYDAY?LAST DOSE ADMINISTERED ON 11?FEB?2021
     Route: 061
     Dates: start: 2020

REACTIONS (3)
  - Underdose [Unknown]
  - Accidental exposure to product [Unknown]
  - Product formulation issue [Unknown]

NARRATIVE: CASE EVENT DATE: 2020
